FAERS Safety Report 4823821-X (Version None)
Quarter: 2005Q4

REPORT INFORMATION
  Report Type: 
  Country: None (occurrence: None)
  Receive Date: 20051107
  Receipt Date: 20051029
  Transmission Date: 20060501
  Serious: Yes (Hospitalization, Other)
  Sender: FDA-Public Use
  Company Number: 200510574BNE

PATIENT
  Age: 66 Year
  Sex: Male
  Weight: 73.1 kg

DRUGS (13)
  1. SORAFENIB [Suspect]
     Indication: METASTATIC MALIGNANT MELANOMA
     Dosage: 400 MG, BID, ORAL; SEE IMAGE
     Route: 048
     Dates: start: 20050921, end: 20051003
  2. SORAFENIB [Suspect]
     Indication: METASTATIC MALIGNANT MELANOMA
     Dosage: 400 MG, BID, ORAL; SEE IMAGE
     Route: 048
     Dates: start: 20050817
  3. DACARBAZINE [Suspect]
     Indication: METASTATIC MALIGNANT MELANOMA
     Route: 048
     Dates: start: 20050817
  4. DACARBAZINE [Suspect]
     Indication: METASTATIC MALIGNANT MELANOMA
     Route: 048
     Dates: start: 20050921
  5. DEXAMETHASONE [Concomitant]
  6. ZOTON [Concomitant]
  7. DOMPERIDONE [Concomitant]
  8. CODEIN PHOPHATE [Concomitant]
  9. ZOPICLONE [Concomitant]
  10. LANSOPRAZOLE [Concomitant]
  11. BRUFEN [Concomitant]
  12. FLUCONAZOLE [Concomitant]
  13. ORAMORPH SR [Concomitant]

REACTIONS (2)
  - ASCITES [None]
  - DEEP VEIN THROMBOSIS [None]
